FAERS Safety Report 5487798-9 (Version None)
Quarter: 2007Q3

REPORT INFORMATION
  Report Type: 
  Country: None (occurrence: None)
  Receive Date: 20070925
  Receipt Date: 20070705
  Transmission Date: 20080115
  Serious: No
  Sender: FDA-Public Use
  Company Number: 2007US000933

PATIENT
  Age: 61 Year
  Sex: Female

DRUGS (7)
  1. VESICARE [Suspect]
     Indication: HYPERTONIC BLADDER
     Dosage: 5 MG, ORAL
     Route: 048
  2. CADUET (AMLODIPINE BESILATE, ATORVASTATIN CALCIUM) [Concomitant]
  3. PREMPRO [Concomitant]
  4. ZYRTEC [Concomitant]
  5. RANITIDINE HCL [Concomitant]
  6. FOSAMAX [Concomitant]
  7. ALLERGY INJECTION [Concomitant]

REACTIONS (3)
  - DRY EYE [None]
  - DRY MOUTH [None]
  - VISION BLURRED [None]
